FAERS Safety Report 10470470 (Version 1)
Quarter: 2014Q3

REPORT INFORMATION
  Report Type: Spontaneous
  Country: US (occurrence: None)
  Receive Date: 20140905
  Receipt Date: 20140905
  Transmission Date: 20150326
  Serious: Yes (Hospitalization)
  Sender: FDA-Public Use
  Company Number: A-US2013-90723

PATIENT
  Age: 42 Year
  Sex: Female

DRUGS (1)
  1. VELETRI [Suspect]
     Active Substance: EPOPROSTENOL
     Indication: COR PULMONALE CHRONIC
     Dosage: 10 NG/KG, PER MIN, IV DRIP
     Route: 041
     Dates: start: 20131026

REACTIONS (3)
  - Abdominal pain upper [None]
  - Nausea [None]
  - Dyspnoea [None]
